FAERS Safety Report 5039037-0 (Version None)
Quarter: 2006Q2

REPORT INFORMATION
  Report Type: 
  Country: None (occurrence: None)
  Receive Date: 20060623
  Receipt Date: 20060608
  Transmission Date: 20061013
  Serious: Yes (Death)
  Sender: FDA-Public Use
  Company Number: SPV1-2006-00031

PATIENT
  Age: 31 Year
  Sex: Male

DRUGS (1)
  1. ADDERALL 15 [Suspect]
     Dosage: NASAL
     Route: 045

REACTIONS (14)
  - ACUTE MYOCARDIAL INFARCTION [None]
  - ACUTE PULMONARY OEDEMA [None]
  - CARDIOMYOPATHY [None]
  - CARDIOTOXICITY [None]
  - CYANOSIS [None]
  - DRUG ABUSER [None]
  - HEPATIC ATROPHY [None]
  - HEPATIC CONGESTION [None]
  - HYPERHIDROSIS [None]
  - INCORRECT ROUTE OF DRUG ADMINISTRATION [None]
  - INTENTIONAL DRUG MISUSE [None]
  - MYOCARDIAL FIBROSIS [None]
  - SUDDEN DEATH [None]
  - VOMITING [None]
